FAERS Safety Report 20721618 (Version 5)
Quarter: 2022Q4

REPORT INFORMATION
  Report Type: Report from Study
  Country: CN (occurrence: CN)
  Receive Date: 20220418
  Receipt Date: 20221027
  Transmission Date: 20230113
  Serious: Yes (Other)
  Sender: FDA-Public Use
  Company Number: CN-TAKEDA-2022TUS025477

PATIENT
  Age: 80 Year
  Sex: Male
  Weight: 51 kg

DRUGS (18)
  1. IXAZOMIB [Suspect]
     Active Substance: IXAZOMIB
     Indication: Plasma cell myeloma
     Dosage: 2.3 MILLIGRAM, 1/WEEK
     Route: 048
     Dates: start: 20210401, end: 20210519
  2. DEXAMETHASONE [Suspect]
     Active Substance: DEXAMETHASONE
     Indication: Plasma cell myeloma
     Dosage: 10 MILLIGRAM, 1/WEEK
     Route: 048
     Dates: start: 20210401
  3. INSULIN GLARGINE [Concomitant]
     Active Substance: INSULIN GLARGINE
     Indication: Diabetes mellitus
     Dosage: UNK UNK, QD
     Route: 058
     Dates: start: 20210507
  4. LEVOTHYROXINE SODIUM [Concomitant]
     Active Substance: LEVOTHYROXINE SODIUM
     Indication: Hypothyroidism
     Dosage: 75 MICROGRAM, QD
     Route: 048
     Dates: start: 20200924, end: 20210506
  5. LEVOTHYROXINE SODIUM [Concomitant]
     Active Substance: LEVOTHYROXINE SODIUM
     Dosage: 50 MICROGRAM, QD
     Route: 048
     Dates: start: 20210507
  6. PAMIDRONATE DISODIUM [Concomitant]
     Active Substance: PAMIDRONATE DISODIUM
     Indication: Plasma cell myeloma
     Dosage: 60 MILLIGRAM
     Route: 042
     Dates: start: 20210427, end: 20210427
  7. PAMIDRONATE DISODIUM [Concomitant]
     Active Substance: PAMIDRONATE DISODIUM
     Dosage: 60 MILLIGRAM
     Route: 042
  8. POLYETHYLENE GLYCOL [Concomitant]
     Active Substance: POLYETHYLENE GLYCOL
     Indication: Constipation
     Dosage: 10 GRAM, QD
     Route: 048
     Dates: start: 20210507
  9. ESTAZOLAM [Concomitant]
     Active Substance: ESTAZOLAM
     Indication: Insomnia
     Dosage: 1 MILLIGRAM, QD
     Route: 048
     Dates: start: 20210108
  10. INSULIN ASPART [Concomitant]
     Active Substance: INSULIN ASPART
     Indication: Diabetes mellitus
     Dosage: UNK UNK, TID
     Route: 030
     Dates: start: 20210408
  11. ASPIRIN [Concomitant]
     Active Substance: ASPIRIN
     Indication: Prophylaxis
     Dosage: 0.1 GRAM, QD
     Route: 048
     Dates: start: 2015
  12. CALCIUM CARBONATE [Concomitant]
     Active Substance: CALCIUM CARBONATE
     Indication: Osteoporosis
     Dosage: UNK, TID
     Route: 048
     Dates: start: 20210408
  13. POTASSIUM CITRATE [Concomitant]
     Active Substance: POTASSIUM CITRATE
     Indication: Hypokalaemia
     Dosage: 10 MILLILITER, TID
     Route: 048
     Dates: start: 20210408
  14. CALCITRIOL [Concomitant]
     Active Substance: CALCITRIOL
     Indication: Osteoporosis
     Dosage: UNK UNK, TID
     Route: 048
     Dates: start: 20210408
  15. AMLODIPINE BESYLATE [Concomitant]
     Active Substance: AMLODIPINE BESYLATE
     Indication: Hypertension
     Dosage: 5 MILLIGRAM, QD
     Route: 048
     Dates: start: 20201221
  16. ACYCLOVIR [Concomitant]
     Active Substance: ACYCLOVIR
     Indication: Herpes zoster
     Dosage: 0.2 GRAM, QD
     Route: 048
     Dates: start: 2020
  17. CANNABIS SATIVA SEED\HERBALS [Concomitant]
     Active Substance: CANNABIS SATIVA SEED\HERBALS
     Indication: Constipation
     Dosage: 0.6 GRAM, QD
     Route: 048
     Dates: start: 20210507
  18. POLYETHYLENE GLYCOL 4000 [Concomitant]
     Active Substance: POLYETHYLENE GLYCOL 4000
     Indication: Constipation
     Dosage: 10 GRAM, QD
     Route: 048
     Dates: start: 20210507

REACTIONS (5)
  - Erythema multiforme [Recovered/Resolved]
  - Dermatitis atopic [Recovering/Resolving]
  - Benign prostatic hyperplasia [Not Recovered/Not Resolved]
  - Skin abrasion [Unknown]
  - Off label use [Unknown]

NARRATIVE: CASE EVENT DATE: 20210427
